FAERS Safety Report 5696083-1 (Version None)
Quarter: 2008Q2

REPORT INFORMATION
  Report Type: 
  Country: None (occurrence: None)
  Receive Date: 20080407
  Receipt Date: 20080401
  Transmission Date: 20081010
  Serious: Yes (Other)
  Sender: FDA-Public Use
  Company Number: B0514598A

PATIENT
  Age: 71 Year
  Sex: Female

DRUGS (4)
  1. ZYBAN [Suspect]
     Dosage: 150MG VARIABLE DOSE
     Route: 048
     Dates: start: 20080212, end: 20080327
  2. UNKNOWN DRUG [Concomitant]
     Dosage: 10MG TWICE PER DAY
     Route: 065
  3. ATARAX [Concomitant]
     Dosage: 10MG THREE TIMES PER DAY
     Route: 065
  4. UNKNOWN DRUG [Concomitant]
     Route: 065

REACTIONS (4)
  - DRY MOUTH [None]
  - EYE HAEMORRHAGE [None]
  - FEELING OF BODY TEMPERATURE CHANGE [None]
  - SOMNOLENCE [None]
